FAERS Safety Report 6613483-3 (Version None)
Quarter: 2010Q1

REPORT INFORMATION
  Report Type: 
  Country: None (occurrence: None)
  Receive Date: 20100304
  Receipt Date: 20100223
  Transmission Date: 20100710
  Serious: Yes (Death, Life-Threatening, Hospitalization, Other)
  Sender: FDA-Public Use
  Company Number: JP-JNJFOC-20100107411

PATIENT
  Sex: Female
  Weight: 49 kg

DRUGS (16)
  1. DOXORUBICIN HCL [Suspect]
     Indication: OVARIAN CANCER RECURRENT
     Route: 042
  2. DOXORUBICIN HCL [Suspect]
     Route: 042
  3. DILTIAZEM HYDROCHLORIDE [Concomitant]
     Indication: HYPERTENSION
     Route: 048
  4. ISALON [Concomitant]
     Route: 048
  5. MEVALOTIN [Concomitant]
     Indication: HYPERCHOLESTEROLAEMIA
     Route: 048
  6. GASTER D [Concomitant]
     Route: 048
  7. CEPHARANTHIN [Concomitant]
     Indication: PROPHYLAXIS
     Route: 048
  8. MAGMITT [Concomitant]
     Indication: CONSTIPATION
     Route: 048
  9. LAXOBERON [Concomitant]
     Indication: CONSTIPATION
     Route: 048
  10. AFTACH [Concomitant]
     Route: 049
  11. PURSENNID [Concomitant]
     Indication: CONSTIPATION
     Route: 048
  12. CEPHARANTHIN [Concomitant]
     Route: 048
  13. TOMIRON [Concomitant]
     Route: 048
  14. HOKUNALIN [Concomitant]
     Route: 062
  15. PLATELETS [Concomitant]
     Route: 042
  16. GLYCERINE [Concomitant]
     Indication: CONSTIPATION
     Route: 054

REACTIONS (7)
  - ASCITES [None]
  - ILEUS [None]
  - OEDEMA [None]
  - OVARIAN CANCER [None]
  - PALMAR-PLANTAR ERYTHRODYSAESTHESIA SYNDROME [None]
  - PANCYTOPENIA [None]
  - PLEURAL EFFUSION [None]
